FAERS Safety Report 24616805 (Version 1)
Quarter: 2024Q4

REPORT INFORMATION
  Report Type: Spontaneous
  Country: US (occurrence: US)
  Receive Date: 20241114
  Receipt Date: 20241114
  Transmission Date: 20250115
  Serious: No
  Sender: OTSUKA
  Company Number: US-OTSUKA-2024_002939

PATIENT
  Age: 71 Year
  Sex: Female
  Weight: 113.4 kg

DRUGS (2)
  1. NUEDEXTA [Suspect]
     Active Substance: DEXTROMETHORPHAN HYDROBROMIDE\QUINIDINE SULFATE
     Indication: Emotional disorder
     Dosage: 1 DF (20MG/10MG), BID (EVERY 12 HOURS)
     Route: 048
     Dates: start: 202308, end: 202312
  2. NUEDEXTA [Suspect]
     Active Substance: DEXTROMETHORPHAN HYDROBROMIDE\QUINIDINE SULFATE
     Indication: Crying

REACTIONS (4)
  - Disease recurrence [Unknown]
  - Therapy interrupted [Unknown]
  - Product use in unapproved indication [Unknown]
  - Inability to afford medication [Unknown]

NARRATIVE: CASE EVENT DATE: 20231201
